FAERS Safety Report 10727697 (Version 1)
Quarter: 2015Q1

REPORT INFORMATION
  Report Type: Spontaneous
  Country: US (occurrence: US)
  Receive Date: 20150121
  Receipt Date: 20150121
  Transmission Date: 20150721
  Serious: Yes (Other)
  Sender: FDA-Public Use
  Company Number: US-TEVA-535566USA

PATIENT
  Sex: Female
  Weight: 146.64 kg

DRUGS (1)
  1. PARAGARD T 380A [Suspect]
     Active Substance: COPPER
     Indication: CONTRACEPTION
     Route: 015
     Dates: start: 1998

REACTIONS (17)
  - Diarrhoea [Unknown]
  - Red blood cell count increased [Unknown]
  - Gallbladder disorder [Unknown]
  - Abdominal distension [Not Recovered/Not Resolved]
  - Pneumonia [Unknown]
  - Gastrooesophageal reflux disease [Unknown]
  - Pain in extremity [Not Recovered/Not Resolved]
  - Constipation [Unknown]
  - Back pain [Not Recovered/Not Resolved]
  - Myocardial infarction [Recovered/Resolved]
  - Irritable bowel syndrome [Unknown]
  - Nausea [Not Recovered/Not Resolved]
  - Anxiety [Not Recovered/Not Resolved]
  - Vomiting [Unknown]
  - Eructation [Not Recovered/Not Resolved]
  - Abdominal pain [Not Recovered/Not Resolved]
  - Expired device used [Unknown]
